FAERS Safety Report 25435587 (Version 1)
Quarter: 2025Q2

REPORT INFORMATION
  Report Type: Spontaneous
  Country: US (occurrence: None)
  Receive Date: 20250613
  Receipt Date: 20250613
  Transmission Date: 20250716
  Serious: Yes (Hospitalization)
  Sender: FDA-CTU
  Company Number: None

PATIENT
  Age: 62 Year
  Sex: Male

DRUGS (11)
  1. AMBRISENTAN [Suspect]
     Active Substance: AMBRISENTAN
     Indication: Pulmonary arterial hypertension
  2. TADALAFIL [Concomitant]
     Active Substance: TADALAFIL
  3. FLUCONAZOLE [Concomitant]
     Active Substance: FLUCONAZOLE
  4. FUROSEMIDE [Concomitant]
     Active Substance: FUROSEMIDE
  5. LINEZOLID [Concomitant]
     Active Substance: LINEZOLID
  6. POTASSIUM CHLORIDE [Concomitant]
     Active Substance: POTASSIUM CHLORIDE
  7. MOXIFLOXACIN HYDROCHLORID [Concomitant]
  8. ASPIRIN [Concomitant]
     Active Substance: ASPIRIN
  9. KEPPRA [Concomitant]
     Active Substance: LEVETIRACETAM
  10. ALBUTEROL SULFATE [Concomitant]
     Active Substance: ALBUTEROL SULFATE
  11. SPIRIVA [Concomitant]
     Active Substance: TIOTROPIUM BROMIDE MONOHYDRATE

REACTIONS (1)
  - Central nervous system infection [None]

NARRATIVE: CASE EVENT DATE: 20250612
